FAERS Safety Report 4920002-6 (Version None)
Quarter: 2006Q1

REPORT INFORMATION
  Report Type: 
  Country: None (occurrence: None)
  Receive Date: 20060223
  Receipt Date: 20060214
  Transmission Date: 20060701
  Serious: Yes (Other)
  Sender: FDA-Public Use
  Company Number: US-AVENTIS-200611619US

PATIENT
  Age: 16 Year
  Sex: Male

DRUGS (8)
  1. LANTUS [Suspect]
     Indication: DIABETES MELLITUS NON-INSULIN-DEPENDENT
     Dates: start: 20040226, end: 20050707
  2. LANTUS [Suspect]
     Dosage: DOSE: UNK
     Dates: start: 20051219
  3. GLUCOPHAGE [Concomitant]
     Dosage: DOSE: UNK
  4. GLUCOPHAGE [Concomitant]
  5. DRUG USED IN DIABETES [Concomitant]
     Dosage: DOSE: UNK
  6. NOVOLOG [Concomitant]
     Dosage: DOSE: SLIDING SCALE
  7. AMARYL [Concomitant]
     Dosage: DOSE: UNK
     Dates: start: 20030721
  8. AMARYL [Concomitant]
     Dates: end: 20051219

REACTIONS (6)
  - ACUTE LYMPHOCYTIC LEUKAEMIA [None]
  - BLOOD GLUCOSE INCREASED [None]
  - CONTUSION [None]
  - DECREASED APPETITE [None]
  - GLYCOSYLATED HAEMOGLOBIN INCREASED [None]
  - WEIGHT DECREASED [None]
